FAERS Safety Report 19680539 (Version 1)
Quarter: 2021Q3

REPORT INFORMATION
  Report Type: Spontaneous
  Country: US (occurrence: US)
  Receive Date: 20210810
  Receipt Date: 20210810
  Transmission Date: 20211014
  Serious: Yes (Disabling, Other)
  Sender: FDA-Public Use
  Company Number: US-PURDUE-USA-2021-0280933

PATIENT
  Age: 30 Year
  Sex: Female

DRUGS (2)
  1. OXYCODONE HCL TABLETS (RHODES 91?490) [Suspect]
     Active Substance: OXYCODONE HYDROCHLORIDE
     Indication: PAIN
     Dosage: 30 MG, TWO TO THREE 30MG EVERY 2 TO 3 HOURS (IMMEDIATE RELEASE)
     Route: 048
     Dates: start: 2012
  2. OXYCONTIN [Suspect]
     Active Substance: OXYCODONE HYDROCHLORIDE
     Indication: PAIN
     Dosage: 80 MG, TWO 80MG TABLETS PER DAY (EXTENDED RELASE)
     Route: 048
     Dates: start: 2012

REACTIONS (4)
  - Disability [Unknown]
  - Walking disability [Unknown]
  - Nervous system disorder [Unknown]
  - Fall [Unknown]

NARRATIVE: CASE EVENT DATE: 20200815
